FAERS Safety Report 18272372 (Version 2)
Quarter: 2020Q3

REPORT INFORMATION
  Report Type: Report from Study
  Country: KR (occurrence: KR)
  Receive Date: 20200916
  Receipt Date: 20200929
  Transmission Date: 20201103
  Serious: Yes (Hospitalization)
  Sender: FDA-Public Use
  Company Number: KR-JNJFOC-20200818991

PATIENT
  Age: 53 Year
  Sex: Male
  Weight: 70 kg

DRUGS (16)
  1. STOGAR [Concomitant]
     Active Substance: LAFUTIDINE
     Indication: PROPHYLAXIS AGAINST GASTROINTESTINAL ULCER
     Dates: start: 20200727
  2. KEPPRA [Concomitant]
     Active Substance: LEVETIRACETAM
     Indication: SEIZURE PROPHYLAXIS
     Dates: start: 20200220, end: 20200823
  3. WELLTAMIN [Concomitant]
     Indication: RADIATION NECROSIS
     Dates: start: 20200122, end: 20200811
  4. ERDAFITINIB. [Suspect]
     Active Substance: ERDAFITINIB
     Indication: NEOPLASM
     Dosage: MED KIT NUMBER 302?6964, 964?0106, 474?7294
     Route: 048
     Dates: start: 20200724, end: 20200831
  5. PILOGEN [Concomitant]
     Indication: PROPHYLAXIS
     Dates: start: 20200807, end: 20200811
  6. TRENTAL [Concomitant]
     Active Substance: PENTOXIFYLLINE
     Indication: RADIATION NECROSIS
     Dates: start: 20200122, end: 20200827
  7. SOLONDO [Concomitant]
     Active Substance: PREDNISOLONE
     Indication: BRAIN OEDEMA
     Dates: start: 20200727, end: 20200811
  8. MACPERAN [Concomitant]
     Active Substance: METOCLOPRAMIDE HYDROCHLORIDE
     Dates: start: 20200812, end: 20200812
  9. SMECTA [Concomitant]
     Active Substance: MONTMORILLONITE
     Indication: DIARRHOEA
     Dates: start: 20200807, end: 20200808
  10. PARACETAMOL [Concomitant]
     Active Substance: ACETAMINOPHEN
     Dates: start: 20200813, end: 20200813
  11. MACPERAN [Concomitant]
     Active Substance: METOCLOPRAMIDE HYDROCHLORIDE
     Route: 042
     Dates: start: 20200822, end: 20200826
  12. MAGNESIUM OXIDE. [Concomitant]
     Active Substance: MAGNESIUM OXIDE
     Indication: CONSTIPATION PROPHYLAXIS
     Dates: start: 20200715, end: 20200801
  13. PARACETAMOL [Concomitant]
     Active Substance: ACETAMINOPHEN
     Indication: HEADACHE
     Dates: start: 20200803, end: 20200803
  14. PARACETAMOL [Concomitant]
     Active Substance: ACETAMINOPHEN
     Dates: start: 20200807, end: 20200807
  15. MACPERAN [Concomitant]
     Active Substance: METOCLOPRAMIDE HYDROCHLORIDE
     Indication: VOMITING
     Dates: start: 20200810, end: 20200812
  16. MACPERAN [Concomitant]
     Active Substance: METOCLOPRAMIDE HYDROCHLORIDE
     Route: 042
     Dates: start: 20200816, end: 20200816

REACTIONS (3)
  - Muscular weakness [Not Recovered/Not Resolved]
  - Vomiting [Recovered/Resolved]
  - Headache [Recovered/Resolved]

NARRATIVE: CASE EVENT DATE: 20200812
